FAERS Safety Report 7453212-7 (Version None)
Quarter: 2011Q2

REPORT INFORMATION
  Report Type: 
  Country: None (occurrence: None)
  Receive Date: 20110502
  Receipt Date: 20110429
  Transmission Date: 20111010
  Serious: Yes (Other)
  Sender: FDA-Public Use
  Company Number: US-PFIZER INC-2011093028

PATIENT
  Sex: Male

DRUGS (2)
  1. REBIF [Suspect]
     Indication: MULTIPLE SCLEROSIS
     Dosage: 44 UG, 3X/WEEK
     Route: 058
     Dates: start: 20030101
  2. SOLU-MEDROL [Suspect]
     Indication: OPTIC NEURITIS
     Dosage: UNK

REACTIONS (1)
  - PANCREATITIS [None]
